FAERS Safety Report 25517605 (Version 2)
Quarter: 2025Q3

REPORT INFORMATION
  Report Type: Spontaneous
  Country: US (occurrence: US)
  Receive Date: 20250704
  Receipt Date: 20250810
  Transmission Date: 20251020
  Serious: No
  Sender: ALEXION PHARMACEUTICALS
  Company Number: US-AstraZeneca-CH-00893099A

PATIENT
  Age: 66 Year
  Sex: Male
  Weight: 81.646 kg

DRUGS (6)
  1. FASENRA [Suspect]
     Active Substance: BENRALIZUMAB
     Indication: Seasonal allergy
     Dosage: 30 MILLIGRAM, Q8W
     Dates: start: 20240930, end: 20250515
  2. FASENRA [Suspect]
     Active Substance: BENRALIZUMAB
  3. ALBUTEROL [Concomitant]
     Active Substance: ALBUTEROL
     Route: 065
  4. FLONASE [Concomitant]
     Active Substance: FLUTICASONE PROPIONATE
     Route: 065
  5. PANTOPRAZOLE [Concomitant]
     Active Substance: PANTOPRAZOLE
     Route: 065
  6. PEPCID [Concomitant]
     Active Substance: FAMOTIDINE
     Route: 065

REACTIONS (1)
  - Dysphonia [Recovering/Resolving]

NARRATIVE: CASE EVENT DATE: 20240930
